FAERS Safety Report 21566870 (Version 1)
Quarter: 2022Q4

REPORT INFORMATION
  Report Type: Report from Study
  Country: CA (occurrence: CA)
  Receive Date: 20221108
  Receipt Date: 20221108
  Transmission Date: 20230113
  Serious: Yes (Other)
  Sender: FDA-Public Use
  Company Number: CA-SAMSUNG BIOEPIS-SB-2022-27998

PATIENT
  Age: 27 Year
  Sex: Female

DRUGS (1)
  1. HADLIMA [Suspect]
     Active Substance: ADALIMUMAB-BWWD
     Indication: Crohn^s disease
     Dosage: 40 MG/0.8 ML;
     Route: 065
     Dates: start: 20211105

REACTIONS (2)
  - Chronic sinusitis [Not Recovered/Not Resolved]
  - Immunosuppression [Not Recovered/Not Resolved]
